FAERS Safety Report 25140767 (Version 2)
Quarter: 2025Q2

REPORT INFORMATION
  Report Type: Spontaneous
  Country: US (occurrence: US)
  Receive Date: 20250331
  Receipt Date: 20250402
  Transmission Date: 20250717
  Serious: Yes (Other)
  Sender: APOTEX
  Company Number: US-APOTEX-2025AP003878

PATIENT
  Age: 42 Year
  Sex: Female

DRUGS (2)
  1. MYCOPHENOLIC ACID [Suspect]
     Active Substance: MYCOPHENOLIC ACID
     Indication: Immunosuppression
     Route: 065
  2. WARFARIN [Suspect]
     Active Substance: WARFARIN
     Indication: Portosplenomesenteric venous thrombosis
     Route: 065

REACTIONS (1)
  - Drug ineffective [Unknown]
